FAERS Safety Report 25287400 (Version 2)
Quarter: 2025Q2

REPORT INFORMATION
  Report Type: Spontaneous
  Country: US (occurrence: US)
  Receive Date: 20250509
  Receipt Date: 20250610
  Transmission Date: 20250716
  Serious: Yes (Hospitalization)
  Sender: DOMPE FARMACEUTICI
  Company Number: US-FARMAPROD-202504-1437

PATIENT
  Sex: Male
  Weight: 96.62 kg

DRUGS (16)
  1. OXERVATE [Suspect]
     Active Substance: CENEGERMIN-BKBJ
     Indication: Neurotrophic keratopathy
     Route: 047
     Dates: start: 20230309, end: 20230503
  2. OXERVATE [Suspect]
     Active Substance: CENEGERMIN-BKBJ
     Indication: Neurotrophic keratopathy
     Route: 047
     Dates: start: 20250303
  3. PROTONIX [Concomitant]
     Active Substance: PANTOPRAZOLE SODIUM
  4. B12 ACTIVE [Concomitant]
  5. D3-2000 [Concomitant]
  6. XARELTO [Concomitant]
     Active Substance: RIVAROXABAN
  7. TORSEMIDE [Concomitant]
     Active Substance: TORSEMIDE
  8. ATENOLOL [Concomitant]
     Active Substance: ATENOLOL
  9. JARDIANCE [Concomitant]
     Active Substance: EMPAGLIFLOZIN
  10. LIPITOR [Concomitant]
     Active Substance: ATORVASTATIN CALCIUM
  11. RESTASIS [Concomitant]
     Active Substance: CYCLOSPORINE
  12. NOVOLOG [Concomitant]
     Active Substance: INSULIN ASPART
  13. ATORVASTATIN CALCIUM [Concomitant]
     Active Substance: ATORVASTATIN CALCIUM
  14. METFORMIN HYDROCHLORIDE [Concomitant]
     Active Substance: METFORMIN HYDROCHLORIDE
  15. CHOLECALCIFEROL [Concomitant]
     Active Substance: CHOLECALCIFEROL
  16. LOSARTAN POTASSIUM [Concomitant]
     Active Substance: LOSARTAN POTASSIUM

REACTIONS (2)
  - Localised infection [Unknown]
  - Product dose omission issue [Unknown]
